FAERS Safety Report 6993170-2 (Version None)
Quarter: 2010Q3

REPORT INFORMATION
  Report Type: 
  Country: None (occurrence: None)
  Receive Date: 20100917
  Receipt Date: 20091009
  Transmission Date: 20110219
  Serious: Yes (Other)
  Sender: FDA-Public Use
  Company Number: US-ASTRAZENECA-2009UW13434

PATIENT
  Age: 44 Year
  Sex: Male
  Weight: 122.5 kg

DRUGS (9)
  1. SEROQUEL [Suspect]
     Indication: BIPOLAR DISORDER
     Dosage: 100 TO 150 MG
     Route: 048
     Dates: start: 20020101, end: 20080101
  2. SEROQUEL [Suspect]
     Indication: DEPRESSION
     Dosage: 100 TO 150 MG
     Route: 048
     Dates: start: 20020101, end: 20080101
  3. SEROQUEL [Suspect]
     Indication: INSOMNIA
     Dosage: 100 TO 150 MG
     Route: 048
     Dates: start: 20020101, end: 20080101
  4. SEROQUEL [Suspect]
     Route: 048
     Dates: start: 20030501, end: 20040901
  5. SEROQUEL [Suspect]
     Route: 048
     Dates: start: 20030501, end: 20040901
  6. SEROQUEL [Suspect]
     Route: 048
     Dates: start: 20030501, end: 20040901
  7. ZYPREXA [Concomitant]
     Dates: start: 20090501
  8. ABILIFY [Concomitant]
     Dates: start: 20080101, end: 20090101
  9. GEODON [Concomitant]

REACTIONS (2)
  - DIABETIC COMA [None]
  - TYPE 1 DIABETES MELLITUS [None]
